FAERS Safety Report 25742664 (Version 2)
Quarter: 2025Q3

REPORT INFORMATION
  Report Type: Spontaneous
  Country: US (occurrence: US)
  Receive Date: 20250830
  Receipt Date: 20250911
  Transmission Date: 20251020
  Serious: Yes (Other)
  Sender: AMGEN
  Company Number: US-AMGEN-USASP2025169885

PATIENT

DRUGS (2)
  1. ETANERCEPT [Suspect]
     Active Substance: ETANERCEPT
     Indication: Arthritis
     Dosage: 25 MILLIGRAM, 2 TIMES/WK
     Route: 058
  2. ETANERCEPT [Suspect]
     Active Substance: ETANERCEPT
     Indication: Osteoarthritis

REACTIONS (2)
  - Knee arthroplasty [Unknown]
  - Drug ineffective for unapproved indication [Unknown]
